FAERS Safety Report 7901777-0 (Version None)
Quarter: 2011Q4

REPORT INFORMATION
  Report Type: 
  Country: None (occurrence: None)
  Receive Date: 20111108
  Receipt Date: 20111024
  Transmission Date: 20120403
  Serious: Yes (Other)
  Sender: FDA-Public Use
  Company Number: PHHY2011JP90130

PATIENT
  Age: 43 Year
  Sex: Female

DRUGS (6)
  1. MYCOPHENOLATE MOFETIL (CELLCEPT) [Concomitant]
     Indication: RENAL AND PANCREAS TRANSPLANT
  2. METHYLPREDNISOLONE [Concomitant]
     Indication: RENAL AND PANCREAS TRANSPLANT
  3. TACROLIMUS [Concomitant]
     Indication: RENAL AND PANCREAS TRANSPLANT
  4. MPZ [Concomitant]
     Dosage: UNK UKN, UNK
  5. MYCOPHENOLATE MOFETIL [Concomitant]
     Dosage: UNK UKN, UNK
  6. BASILIXIMAB [Suspect]
     Indication: RENAL AND PANCREAS TRANSPLANT
     Route: 042

REACTIONS (7)
  - RENAL TUBULAR NECROSIS [None]
  - ISCHAEMIA [None]
  - PNEUMOCYSTIS JIROVECI PNEUMONIA [None]
  - COMPLICATIONS OF TRANSPLANTED KIDNEY [None]
  - HAEMORRHAGE [None]
  - RENAL ISCHAEMIA [None]
  - RENAL AND PANCREAS TRANSPLANT REJECTION [None]
